FAERS Safety Report 12597724 (Version 4)
Quarter: 2016Q4

REPORT INFORMATION
  Report Type: Spontaneous
  Country: US (occurrence: US)
  Receive Date: 20160727
  Receipt Date: 20161220
  Transmission Date: 20170207
  Serious: No
  Sender: FDA-Public Use
  Company Number: US-PFIZER INC-2016353534

PATIENT
  Age: 71 Year
  Sex: Female

DRUGS (30)
  1. CARVEDILOL. [Concomitant]
     Active Substance: CARVEDILOL
     Dosage: 12.5 MG, 2X/DAY ( WITH FOOD )
     Route: 048
     Dates: start: 20131106
  2. DORZOLAMIDE TIMOLOL [Concomitant]
     Active Substance: DORZOLAMIDE
     Dosage: UNK, DAILY (DORZOLAMIDE HYDROCHLORIDE 22.3 MG/ML, TIMOLOL MALEATE 6.8 MG/ML)
     Route: 047
  3. LEVOTHYROXINE. [Concomitant]
     Active Substance: LEVOTHYROXINE
     Dosage: 50 UG, 1X/DAY
     Route: 048
     Dates: start: 20160930
  4. OMEPRAZOLE. [Concomitant]
     Active Substance: OMEPRAZOLE
     Dosage: 20 MG, 1X/DAY 30-MLNUTES BEFORE A MEAL
     Route: 048
     Dates: start: 20160713
  5. PRED FORTE [Concomitant]
     Active Substance: PREDNISOLONE ACETATE
     Dosage: 1 %, UNK
     Route: 047
  6. RANEXA [Concomitant]
     Active Substance: RANOLAZINE
     Dosage: 500 MG, 2X/DAY
     Route: 048
     Dates: start: 20160814
  7. ATORVASTATIN CALCIUM. [Suspect]
     Active Substance: ATORVASTATIN CALCIUM
     Dosage: UNK
     Route: 048
  8. ALBUTEROL. [Concomitant]
     Active Substance: ALBUTEROL
     Dosage: UNK UNK, 4X/DAY (INHALE 2 PUFFS BY INHALATION ROUTE QID FOR 7 DAYS)
     Route: 045
     Dates: start: 20061128
  9. AMLODIPINE [Concomitant]
     Active Substance: AMLODIPINE BESYLATE
     Dosage: 5 MG, 1X/DAY
     Route: 048
  10. LYRICA [Concomitant]
     Active Substance: PREGABALIN
     Dosage: 50 MG, 3X/DAY
     Route: 048
     Dates: start: 20160805
  11. ROBAXIN [Concomitant]
     Active Substance: METHOCARBAMOL
     Dosage: 750 MG, AS NEEDED (3 TIMES A DAY)
     Route: 048
     Dates: start: 20151105
  12. FENOFIBRATE. [Suspect]
     Active Substance: FENOFIBRATE
     Dosage: UNK
  13. ISOSORBIDE MONONITRATE. [Concomitant]
     Active Substance: ISOSORBIDE MONONITRATE
     Dosage: 30 MG, 1X/DAY
     Route: 048
  14. VITAMIN D3 [Concomitant]
     Active Substance: CHOLECALCIFEROL
     Dosage: 5000 IU, DAILY
     Route: 048
     Dates: start: 20160111
  15. ASPIRIN. [Concomitant]
     Active Substance: ASPIRIN
     Dosage: 325 MG, 1X/DAY
     Route: 048
  16. JANUVIA [Concomitant]
     Active Substance: SITAGLIPTIN PHOSPHATE
     Dosage: 100 MG, DAILY FOR 90 DAYS
     Route: 048
     Dates: start: 20160811
  17. OXYCODONE AND ACETAMINOPHEN [Concomitant]
     Active Substance: ACETAMINOPHEN\OXYCODONE HYDROCHLORIDE
     Indication: ARTHRITIS
     Dosage: 1 DF, AS NEEDED (TID, OXYCODONE HYDROCHLORIDE 5, PARACETAMOL 325 MG)
     Route: 048
     Dates: start: 20161116
  18. TRIAMCINOLONE ACETONIDE. [Concomitant]
     Active Substance: TRIAMCINOLONE ACETONIDE
     Dosage: 0.5 %, 2 TIMES A DAY AS NEEDED FOR 10 DAYS
     Route: 061
     Dates: start: 20160321
  19. CALCIUM [Concomitant]
     Active Substance: CALCIUM
     Dosage: 500 MG, 2X/DAY
     Route: 048
  20. CLOPIDOGREL [Concomitant]
     Active Substance: CLOPIDOGREL BISULFATE
     Dosage: 75 MG, DAILY
     Route: 048
     Dates: start: 20160804
  21. LORAZEPAM. [Concomitant]
     Active Substance: LORAZEPAM
     Indication: ANXIETY
     Dosage: 1 MG, AS NEEDED (2 TIMES PER DAY)
     Route: 048
     Dates: start: 20160614
  22. PRAVASTATIN. [Suspect]
     Active Substance: PRAVASTATIN
     Dosage: UNK
  23. COENZYME Q10 [Concomitant]
     Active Substance: UBIDECARENONE
     Dosage: 150 MG, DAILY
     Route: 048
  24. LOSARTAN AND HYDROCHLOROTHIAZIDE [Concomitant]
     Active Substance: HYDROCHLOROTHIAZIDE\LOSARTAN POTASSIUM
     Dosage: UNK UNK, 1X/DAY(LOSARTAN: 50MG; HYDROCHLOROTHIAZIDE: 12.5 MG)
     Route: 048
  25. METFORMIN [Concomitant]
     Active Substance: METFORMIN HYDROCHLORIDE
     Dosage: 1000 MG, 2X/DAY (WITH MORNING AND EVENING MEALS)
     Route: 048
     Dates: start: 20160804
  26. VITAMIN C [Concomitant]
     Active Substance: ASCORBIC ACID
     Dosage: 500 MG, 1X/DAY
     Route: 048
     Dates: start: 20160325
  27. ZOLPIDEM [Concomitant]
     Active Substance: ZOLPIDEM\ZOLPIDEM TARTRATE
     Dosage: 5 MG, AS NEEDED (ONCE A DAY,IN THE EVENING)
     Route: 048
     Dates: start: 20150619
  28. LIPITOR [Suspect]
     Active Substance: ATORVASTATIN CALCIUM
     Dosage: UNK
     Route: 048
  29. FERROUS GLUCONATE [Concomitant]
     Active Substance: FERROUS GLUCONATE
     Dosage: 325 MG, 2X/DAY
     Route: 048
     Dates: start: 20160325
  30. NITROSTAT [Concomitant]
     Active Substance: NITROGLYCERIN
     Dosage: 0.3 MG, AS NEEDED
     Route: 060
     Dates: start: 20151209

REACTIONS (4)
  - Blood pressure increased [Unknown]
  - Muscle atrophy [Unknown]
  - Pain in extremity [Unknown]
  - Drug hypersensitivity [Recovered/Resolved]
